FAERS Safety Report 12074149 (Version 3)
Quarter: 2016Q1

REPORT INFORMATION
  Report Type: Spontaneous
  Country: CN (occurrence: CN)
  Receive Date: 20160212
  Receipt Date: 20160308
  Transmission Date: 20160526
  Serious: Yes (Other)
  Sender: FDA-Public Use
  Company Number: CN-ELI_LILLY_AND_COMPANY-CN201602000804

PATIENT
  Age: 84 Year
  Sex: Female

DRUGS (2)
  1. FORSTEO [Suspect]
     Active Substance: TERIPARATIDE
     Indication: OSTEOPOROSIS
     Dosage: 20 UG, QD
     Route: 058
     Dates: start: 20160129, end: 20160130
  2. GLUCOBAY [Concomitant]
     Active Substance: ACARBOSE
     Dosage: 1 DF, QD

REACTIONS (8)
  - Pallor [Unknown]
  - Hyperhidrosis [Unknown]
  - Feeling abnormal [Unknown]
  - Deafness bilateral [Recovered/Resolved]
  - Visual impairment [Unknown]
  - Vertigo [Recovering/Resolving]
  - Dizziness [Recovering/Resolving]
  - Limb discomfort [Unknown]

NARRATIVE: CASE EVENT DATE: 20160129
